FAERS Safety Report 7152354-3 (Version None)
Quarter: 2010Q4

REPORT INFORMATION
  Report Type: 
  Country: None (occurrence: None)
  Receive Date: 20101209
  Receipt Date: 20101209
  Transmission Date: 20110411
  Serious: Yes (Death)
  Sender: FDA-Public Use
  Company Number: None

PATIENT
  Age: 59 Year
  Sex: Male
  Weight: 65.3 kg

DRUGS (4)
  1. TAMIFLU [Suspect]
     Dates: start: 20101029, end: 20101030
  2. ZOFRAN [Suspect]
     Dates: start: 20101029, end: 20101030
  3. MOTRIN [Suspect]
     Dates: start: 20101029, end: 20101030
  4. TYLENOL-500 [Suspect]
     Dates: start: 20101029, end: 20101030

REACTIONS (6)
  - DISSEMINATED INTRAVASCULAR COAGULATION [None]
  - HEPATIC FAILURE [None]
  - MULTI-ORGAN FAILURE [None]
  - PETECHIAE [None]
  - RENAL FAILURE [None]
  - SHOCK [None]
